FAERS Safety Report 6860184-2 (Version None)
Quarter: 2010Q3

REPORT INFORMATION
  Report Type: 
  Country: None (occurrence: None)
  Receive Date: 20100719
  Receipt Date: 20100719
  Transmission Date: 20110219
  Serious: No
  Sender: FDA-Public Use
  Company Number: None

PATIENT
  Age: 62 Year
  Sex: Male
  Weight: 103 kg

DRUGS (2)
  1. FLUOXETINE [Suspect]
     Dosage: 40 MG EVERY DAY PO
     Route: 048
     Dates: start: 20091218, end: 20100708
  2. TRAMADOL HCL [Suspect]
     Dosage: 50 MG QID PO
     Route: 048
     Dates: start: 20091213

REACTIONS (1)
  - SEROTONIN SYNDROME [None]
